FAERS Safety Report 18610513 (Version 1)
Quarter: 2020Q4

REPORT INFORMATION
  Report Type: Spontaneous
  Country: US (occurrence: US)
  Receive Date: 20201211
  Receipt Date: 20201211
  Transmission Date: 20210114
  Serious: No
  Sender: FDA-Public Use
  Company Number: None

PATIENT
  Age: 65 Year
  Sex: Female
  Weight: 48.9 kg

DRUGS (1)
  1. ENTYVIO [Suspect]
     Active Substance: VEDOLIZUMAB
     Indication: INFLAMMATORY BOWEL DISEASE
     Dosage: ?          OTHER FREQUENCY:EVERY 2 WEEKS X2;?
     Route: 041
     Dates: start: 20201026

REACTIONS (1)
  - Pruritus [None]

NARRATIVE: CASE EVENT DATE: 20201211
